FAERS Safety Report 6137019-9 (Version None)
Quarter: 2009Q1

REPORT INFORMATION
  Report Type: 
  Country: None (occurrence: None)
  Receive Date: 20090326
  Receipt Date: 20090326
  Transmission Date: 20090719
  Serious: No
  Sender: FDA-Public Use
  Company Number: None

PATIENT
  Age: 61 Year
  Sex: Male
  Weight: 81.19 kg

DRUGS (1)
  1. TERAZOSIN HCL [Suspect]
     Dosage: 5 MG AT BE9DTIME PO
     Route: 048
     Dates: start: 19990903, end: 19990929

REACTIONS (2)
  - HEART RATE INCREASED [None]
  - HYPOTENSION [None]
